FAERS Safety Report 18055640 (Version 1)
Quarter: 2020Q3

REPORT INFORMATION
  Report Type: Spontaneous
  Country: CA (occurrence: CA)
  Receive Date: 20200722
  Receipt Date: 20200722
  Transmission Date: 20201103
  Serious: Yes (Life-Threatening, Hospitalization, Other)
  Sender: FDA-Public Use
  Company Number: CA-PFIZER INC-2020277440

PATIENT
  Age: 58 Year
  Sex: Female

DRUGS (4)
  1. RITUXIMAB. [Suspect]
     Active Substance: RITUXIMAB
     Dosage: UNK (SECOND DOSE OF RITUXIMAB ON DAY 26)
  2. PREDNISONE. [Concomitant]
     Active Substance: PREDNISONE
     Indication: RHEUMATOID ARTHRITIS
     Dosage: UNK (LOW?DOSE) (5?10 MG/DAILY)
  3. RITUXIMAB. [Suspect]
     Active Substance: RITUXIMAB
     Indication: RHEUMATOID ARTHRITIS
     Dosage: UNK (ADMINISTERED OVER 4 H) (FIRST INFUSION)
  4. BUPROPION. [Concomitant]
     Active Substance: BUPROPION
     Indication: DEPRESSION
     Dosage: UNK

REACTIONS (9)
  - Hypotension [Unknown]
  - Fatigue [Recovered/Resolved]
  - Throat tightness [Unknown]
  - Hypersensitivity [Unknown]
  - Tachycardia [Unknown]
  - Angioedema [Unknown]
  - Oropharyngeal pain [Recovered/Resolved]
  - Migraine [Recovered/Resolved]
  - Infusion site urticaria [Unknown]
